FAERS Safety Report 9305414 (Version 1)
Quarter: 2013Q2

REPORT INFORMATION
  Report Type: Spontaneous
  Country: JP (occurrence: JP)
  Receive Date: 20130523
  Receipt Date: 20130523
  Transmission Date: 20140414
  Serious: Yes (Life-Threatening)
  Sender: FDA-Public Use
  Company Number: JP-BRISTOL-MYERS SQUIBB COMPANY-18916163

PATIENT
  Age: 46 Year
  Sex: Male

DRUGS (1)
  1. METGLUCO [Suspect]
     Indication: SUICIDE ATTEMPT
     Dosage: 1DF=160 TABS
     Route: 048
     Dates: start: 20130509, end: 20130509

REACTIONS (2)
  - Lactic acidosis [Recovering/Resolving]
  - Intentional overdose [Unknown]
